FAERS Safety Report 18917931 (Version 33)
Quarter: 2024Q2

REPORT INFORMATION
  Report Type: Report from Study
  Country: US (occurrence: US)
  Receive Date: 20210219
  Receipt Date: 20240412
  Transmission Date: 20240716
  Serious: Yes (Hospitalization, Other)
  Sender: FDA-Public Use
  Company Number: US-SHIRE-US202000417

PATIENT
  Sex: Female

DRUGS (5)
  1. HUMAN IMMUNOGLOBULIN G [Suspect]
     Active Substance: HUMAN IMMUNOGLOBULIN G
     Indication: Primary immunodeficiency syndrome
     Dosage: 8 GRAM, 1/WEEK
     Route: 065
  2. HUMAN IMMUNOGLOBULIN G [Suspect]
     Active Substance: HUMAN IMMUNOGLOBULIN G
     Indication: Selective IgG subclass deficiency
     Dosage: 10 GRAM, 1/WEEK
     Route: 065
  3. HUMAN IMMUNOGLOBULIN G [Suspect]
     Active Substance: HUMAN IMMUNOGLOBULIN G
     Dosage: 12 GRAM, 1/WEEK
     Route: 065
  4. PNEUMOCOCCAL VACCINE POLYVALENT NOS [Suspect]
     Active Substance: PNEUMOCOCCAL VACCINE POLYVALENT
     Indication: Product used for unknown indication
     Dosage: UNK
     Route: 065
  5. EVUSHELD [Suspect]
     Active Substance: CILGAVIMAB\TIXAGEVIMAB
     Indication: Product used for unknown indication
     Dosage: UNK
     Route: 065

REACTIONS (114)
  - Autoimmune disorder [Unknown]
  - Autoimmune thyroiditis [Unknown]
  - Staphylococcal infection [Unknown]
  - Deafness unilateral [Unknown]
  - Leukaemia [Unknown]
  - Arthritis infective [Unknown]
  - Drop attacks [Not Recovered/Not Resolved]
  - Brain neoplasm [Unknown]
  - Systemic lupus erythematosus [Unknown]
  - Macular degeneration [Unknown]
  - Cataract [Unknown]
  - Lymphoma [Unknown]
  - Cellulitis [Unknown]
  - Upper limb fracture [Unknown]
  - Neoplasm malignant [Not Recovered/Not Resolved]
  - Meniere^s disease [Not Recovered/Not Resolved]
  - Gastroenteritis salmonella [Unknown]
  - Listeriosis [Recovering/Resolving]
  - B-lymphocyte count decreased [Unknown]
  - Spinal disorder [Not Recovered/Not Resolved]
  - T-lymphocyte count decreased [Not Recovered/Not Resolved]
  - Spinal osteoarthritis [Not Recovered/Not Resolved]
  - Joint injury [Unknown]
  - Fall [Unknown]
  - Gait disturbance [Unknown]
  - Sensitive skin [Unknown]
  - Dysstasia [Unknown]
  - Needle issue [Unknown]
  - Pain [Unknown]
  - Infusion site pain [Unknown]
  - Back pain [Unknown]
  - Pain in extremity [Unknown]
  - Allergy to plants [Unknown]
  - Tooth fracture [Unknown]
  - Ear infection [Unknown]
  - Weight decreased [Unknown]
  - Arthritis [Recovering/Resolving]
  - Bone pain [Unknown]
  - Blood immunoglobulin A decreased [Unknown]
  - Tumour marker increased [Unknown]
  - Meniscus injury [Unknown]
  - Muscle injury [Unknown]
  - Sinus congestion [Not Recovered/Not Resolved]
  - Immunoglobulins decreased [Unknown]
  - Illness [Unknown]
  - Lymphocyte count decreased [Not Recovered/Not Resolved]
  - Intervertebral disc protrusion [Unknown]
  - Lymphopenia [Unknown]
  - Thyroid function test abnormal [Unknown]
  - Pharyngeal erythema [Unknown]
  - Vein disorder [Unknown]
  - Nervousness [Unknown]
  - Pulmonary mass [Unknown]
  - Vocal cord scarring [Unknown]
  - Hypoaesthesia [Unknown]
  - Dysphonia [Not Recovered/Not Resolved]
  - Trigeminal neuralgia [Unknown]
  - Dysphagia [Not Recovered/Not Resolved]
  - Cutaneous calcification [Unknown]
  - Spinal pain [Unknown]
  - Hepatitis B antibody positive [Unknown]
  - Conjunctival hyperaemia [Not Recovered/Not Resolved]
  - Ear congestion [Not Recovered/Not Resolved]
  - Poor venous access [Unknown]
  - Essential tremor [Not Recovered/Not Resolved]
  - Sneezing [Unknown]
  - Infusion site discharge [Unknown]
  - Skin laceration [Unknown]
  - Oesophageal disorder [Unknown]
  - Epistaxis [Unknown]
  - Contusion [Unknown]
  - Lymphadenopathy [Unknown]
  - Localised oedema [Unknown]
  - Infusion site haemorrhage [Unknown]
  - Feeling hot [Unknown]
  - Malaise [Unknown]
  - Blood pressure increased [Unknown]
  - Dyspnoea [Not Recovered/Not Resolved]
  - Infusion site discomfort [Unknown]
  - Asthma [Unknown]
  - Vertigo [Unknown]
  - Pruritus [Unknown]
  - Hepatic enzyme abnormal [Unknown]
  - Rash [Unknown]
  - Decreased appetite [Unknown]
  - Neuroendocrine tumour [Unknown]
  - Gastroenteritis viral [Unknown]
  - Hiccups [Unknown]
  - Blood test abnormal [Unknown]
  - Obstructive sleep apnoea syndrome [Unknown]
  - Upper respiratory tract infection [Not Recovered/Not Resolved]
  - Sinusitis [Not Recovered/Not Resolved]
  - Vestibular disorder [Unknown]
  - Multiple allergies [Unknown]
  - Pulmonary function test decreased [Not Recovered/Not Resolved]
  - Throat irritation [Unknown]
  - Paranasal sinus discomfort [Unknown]
  - COVID-19 [Recovered/Resolved]
  - Stridor [Not Recovered/Not Resolved]
  - Bronchitis [Unknown]
  - Muscle contractions involuntary [Unknown]
  - Product container issue [Unknown]
  - Gastroenteritis [Recovering/Resolving]
  - Food contamination [Recovering/Resolving]
  - Asthenia [Not Recovered/Not Resolved]
  - Balance disorder [Unknown]
  - Nasal congestion [Not Recovered/Not Resolved]
  - Cough [Not Recovered/Not Resolved]
  - Arthralgia [Recovered/Resolved]
  - Headache [Not Recovered/Not Resolved]
  - Fatigue [Unknown]
  - Pyrexia [Not Recovered/Not Resolved]
  - Nausea [Unknown]
  - Product dose omission issue [Unknown]

NARRATIVE: CASE EVENT DATE: 20190101
